FAERS Safety Report 5829001-3 (Version None)
Quarter: 2008Q3

REPORT INFORMATION
  Report Type: 
  Country: None (occurrence: None)
  Receive Date: 20080731
  Receipt Date: 20080723
  Transmission Date: 20090109
  Serious: Yes (Other)
  Sender: FDA-Public Use
  Company Number: PHHY2008AT14826

PATIENT
  Sex: Female
  Weight: 56 kg

DRUGS (7)
  1. GLEEVEC [Suspect]
     Indication: CHRONIC MYELOID LEUKAEMIA
     Dosage: 400 MG, QD
     Route: 048
     Dates: start: 20070801
  2. GLEEVEC [Suspect]
     Dosage: 200 MG, QD
     Dates: start: 20080201
  3. GLEEVEC [Suspect]
     Dosage: 400 MG, QD
     Dates: start: 20080401, end: 20080703
  4. TASIGNA [Suspect]
     Indication: CHRONIC MYELOID LEUKAEMIA
     Dosage: 400 MG, BID
     Dates: start: 20080704
  5. HALCION [Concomitant]
     Indication: INSOMNIA
     Dosage: 0.25 MG EVENING
     Route: 048
  6. DIPHENHYDRAMINE HCL [Concomitant]
     Indication: DRUG INTOLERANCE
     Dosage: 4 DF, QD
     Route: 048
     Dates: start: 20080711
  7. ULSAL [Concomitant]
     Indication: DRUG INTOLERANCE
     Dosage: 4 DF, QD
     Route: 048
     Dates: start: 20080711

REACTIONS (5)
  - EYELID OEDEMA [None]
  - OEDEMA PERIPHERAL [None]
  - PANCYTOPENIA [None]
  - SKIN TOXICITY [None]
  - THROMBOCYTOPENIA [None]
